FAERS Safety Report 8577266-X (Version None)
Quarter: 2012Q3

REPORT INFORMATION
  Report Type: 
  Country: None (occurrence: None)
  Receive Date: 20120807
  Receipt Date: 20120529
  Transmission Date: 20120928
  Serious: No
  Sender: FDA-Public Use
  Company Number: US-COVIDIEN/TYCO HEALTHCARE/MALLINCKRODT-T201202439

PATIENT
  Sex: Male

DRUGS (1)
  1. PENNSAID [Suspect]
     Indication: OSTEOARTHRITIS
     Dosage: 40 GTT, QID
     Route: 062
     Dates: start: 20120418, end: 20120524

REACTIONS (2)
  - SWELLING [None]
  - CELLULITIS [None]
